FAERS Safety Report 23150829 (Version 1)
Quarter: 2023Q4

REPORT INFORMATION
  Report Type: Spontaneous
  Country: KR (occurrence: KR)
  Receive Date: 20231106
  Receipt Date: 20231106
  Transmission Date: 20240110
  Serious: Yes (Other)
  Sender: FDA-Public Use
  Company Number: KR-SCALL-2023-APC-048613

PATIENT
  Age: 48 Year
  Sex: Male

DRUGS (3)
  1. DUTASTERIDE [Suspect]
     Active Substance: DUTASTERIDE
     Route: 048
     Dates: start: 202202
  2. COMIRNATY (TOZINAMERAN) [Suspect]
     Active Substance: TOZINAMERAN
     Indication: COVID-19 immunisation
     Route: 065
     Dates: start: 202201
  3. ISOTRETINOIN [Concomitant]
     Active Substance: ISOTRETINOIN
     Route: 065

REACTIONS (4)
  - Erectile dysfunction [Not Recovered/Not Resolved]
  - Drug interaction [Unknown]
  - Pruritus [Not Recovered/Not Resolved]
  - Skin wrinkling [Not Recovered/Not Resolved]
